FAERS Safety Report 6066165-3 (Version None)
Quarter: 2009Q1

REPORT INFORMATION
  Report Type: 
  Country: None (occurrence: None)
  Receive Date: 20090205
  Receipt Date: 20090122
  Transmission Date: 20090719
  Serious: Yes (Hospitalization, Other)
  Sender: FDA-Public Use
  Company Number: PHHY2008MX28274

PATIENT
  Sex: Female

DRUGS (1)
  1. DIOVAN HCT [Suspect]
     Indication: HYPERTENSION
     Dosage: 160/25 MG/ DAY
     Route: 048
     Dates: start: 20050501

REACTIONS (6)
  - BIOPSY [None]
  - BLADDER CANCER [None]
  - GALLBLADDER OPERATION [None]
  - SURGERY [None]
  - TRANSITIONAL CELL CARCINOMA [None]
  - VAGINAL HAEMORRHAGE [None]
